FAERS Safety Report 9008610 (Version 3)
Quarter: 2013Q3

REPORT INFORMATION
  Report Type: Spontaneous
  Country: US (occurrence: US)
  Receive Date: 20130111
  Receipt Date: 20130731
  Transmission Date: 20140515
  Serious: Yes (Hospitalization, Other)
  Sender: FDA-Public Use
  Company Number: US-PFIZER INC-2013013077

PATIENT
  Age: 60 Year
  Sex: Male
  Weight: 78.01 kg

DRUGS (8)
  1. NEURONTIN [Suspect]
     Indication: NEURALGIA
     Dosage: 1100 MG, UNK
  2. WELLBUTRIN [Suspect]
     Indication: SMOKING CESSATION THERAPY
     Dosage: UNK
  3. NARCAN [Suspect]
     Dosage: UNK
  4. FENTORA [Concomitant]
     Indication: BREAKTHROUGH PAIN
     Dosage: 400 UG, AS NEEDED
  5. OPANA ER [Concomitant]
     Dosage: 30 MG, 2X/DAY
  6. DIAZEPAM [Concomitant]
     Indication: MUSCLE SPASMS
     Dosage: 10 MG, AS NEEDED
  7. PROMETHAZINE [Concomitant]
     Indication: NAUSEA
     Dosage: 25 MG, AS NEEDED
  8. RELPAX [Concomitant]
     Indication: MIGRAINE
     Dosage: 40 MG, AS NEEDED

REACTIONS (3)
  - Unresponsive to stimuli [Unknown]
  - Respiratory rate decreased [Unknown]
  - Drug ineffective [Unknown]
